FAERS Safety Report 9781868 (Version 1)
Quarter: 2013Q4

REPORT INFORMATION
  Report Type: Report from Study
  Country: BR (occurrence: BR)
  Receive Date: 20131225
  Receipt Date: 20131225
  Transmission Date: 20140711
  Serious: Yes (Hospitalization)
  Sender: FDA-Public Use
  Company Number: BR-ROCHE-1323895

PATIENT
  Sex: Female
  Weight: 70 kg

DRUGS (7)
  1. MABTHERA [Suspect]
     Indication: RHEUMATOID ARTHRITIS
     Route: 042
     Dates: start: 20130129
  2. ATENOLOL [Concomitant]
  3. LOSARTAN [Concomitant]
  4. HYDROCHLOROTHIAZIDE [Concomitant]
  5. LANSOPRAZOLE [Concomitant]
  6. TIBOLONE [Concomitant]
  7. LEFLUNOMIDE [Concomitant]

REACTIONS (1)
  - Bunion [Unknown]
